FAERS Safety Report 9651988 (Version 1)
Quarter: 2013Q4

REPORT INFORMATION
  Report Type: Spontaneous
  Country: US (occurrence: None)
  Receive Date: 20131028
  Receipt Date: 20131028
  Transmission Date: 20140711
  Serious: Yes (Hospitalization)
  Sender: FDA-Public Use
  Company Number: None

PATIENT
  Age: 59 Year
  Sex: Male
  Weight: 109.77 kg

DRUGS (1)
  1. VORINOSTAT [Suspect]
     Indication: SQUAMOUS CELL CARCINOMA OF HEAD AND NECK
     Dosage: 200MG MON, WED, FRID
     Route: 048
     Dates: start: 20130902, end: 20131025

REACTIONS (2)
  - Neutropenia [None]
  - Hypocalcaemia [None]
